FAERS Safety Report 20211430 (Version 1)
Quarter: 2021Q4

REPORT INFORMATION
  Report Type: Spontaneous
  Country: US (occurrence: None)
  Receive Date: 20211220
  Receipt Date: 20211220
  Transmission Date: 20220303
  Serious: Yes (Other)
  Sender: FDA-Public Use
  Company Number: None

PATIENT
  Age: 74 Year
  Sex: Female
  Weight: 69.62 kg

DRUGS (5)
  1. OLANZAPINE [Suspect]
     Active Substance: OLANZAPINE
     Dosage: FREQUENCY : TWICE A DAY;?
     Route: 048
     Dates: end: 20211102
  2. OLANZAPINE [Suspect]
     Active Substance: OLANZAPINE
     Dosage: FREQUENCY : AT BEDTIME;?
     Route: 048
     Dates: end: 20211104
  3. LITHIUM [Concomitant]
     Active Substance: LITHIUM
  4. APIXABAN [Concomitant]
     Active Substance: APIXABAN
  5. ALLOPURINOL [Concomitant]
     Active Substance: ALLOPURINOL

REACTIONS (3)
  - Salivary hypersecretion [None]
  - Dysarthria [None]
  - Drug effect less than expected [None]

NARRATIVE: CASE EVENT DATE: 20211026
